FAERS Safety Report 14169626 (Version 1)
Quarter: 2017Q4

REPORT INFORMATION
  Report Type: Spontaneous
  Country: US (occurrence: US)
  Receive Date: 20171107
  Receipt Date: 20171107
  Transmission Date: 20180321
  Serious: Yes (Disabling)
  Sender: FDA-Public Use
  Company Number: None

PATIENT
  Age: 65 Year
  Sex: Female
  Weight: 74.25 kg

DRUGS (7)
  1. MULTIVITAMIN [Concomitant]
     Active Substance: VITAMINS
  2. NEXIUM [Concomitant]
     Active Substance: ESOMEPRAZOLE MAGNESIUM
  3. ESTRADIOL VAGINAL TABLET 10 MCG [Suspect]
     Active Substance: ESTRADIOL
     Indication: VULVOVAGINAL PAIN
     Dosage: ?          QUANTITY:8 TABLET(S);OTHER FREQUENCY:TWICE WEEKLY;?
     Route: 067
     Dates: start: 20171002, end: 20171102
  4. ESTRADIOL VAGINAL TABLET 10 MCG [Suspect]
     Active Substance: ESTRADIOL
     Indication: VULVOVAGINAL DRYNESS
     Dosage: ?          QUANTITY:8 TABLET(S);OTHER FREQUENCY:TWICE WEEKLY;?
     Route: 067
     Dates: start: 20171002, end: 20171102
  5. ESTRADIOL VAGINAL TABLET 10 MCG [Suspect]
     Active Substance: ESTRADIOL
     Indication: URETHRITIS
     Dosage: ?          QUANTITY:8 TABLET(S);OTHER FREQUENCY:TWICE WEEKLY;?
     Route: 067
     Dates: start: 20171002, end: 20171102
  6. VITAMIN D [Concomitant]
     Active Substance: CHOLECALCIFEROL
  7. FIBER SUPPLEMENT [Concomitant]

REACTIONS (8)
  - Product substitution issue [None]
  - Device breakage [None]
  - Disease recurrence [None]
  - Urethritis [None]
  - Vulvovaginal dryness [None]
  - Discomfort [None]
  - Device difficult to use [None]
  - Drug ineffective [None]

NARRATIVE: CASE EVENT DATE: 20171002
